FAERS Safety Report 14082276 (Version 1)
Quarter: 2017Q4

REPORT INFORMATION
  Report Type: Spontaneous
  Country: FR (occurrence: FR)
  Receive Date: 20171013
  Receipt Date: 20171013
  Transmission Date: 20180321
  Serious: Yes (Hospitalization)
  Sender: FDA-Public Use
  Company Number: FR-B. BRAUN MEDICAL INC.-2029948

PATIENT
  Age: 82 Year
  Sex: Male

DRUGS (13)
  1. PANTOPRAZOLE SODIUM. [Concomitant]
     Active Substance: PANTOPRAZOLE SODIUM
  2. METRONIDAZOLE. [Suspect]
     Active Substance: METRONIDAZOLE
     Indication: INFECTION
     Dates: start: 20161006, end: 20161011
  3. FOLIC ACID. [Concomitant]
     Active Substance: FOLIC ACID
  4. CYANOCOBALAMIN. [Concomitant]
     Active Substance: CYANOCOBALAMIN
  5. FENOFIBRATE. [Concomitant]
     Active Substance: FENOFIBRATE
  6. PREDNISONE. [Concomitant]
     Active Substance: PREDNISONE
  7. KARDEGIC [Concomitant]
     Active Substance: ASPIRIN DL-LYSINE
  8. SPASFON LYOC (PHLOROGLUCINOL) [Concomitant]
  9. LOPERAMIDE HCL [Concomitant]
     Active Substance: LOPERAMIDE HYDROCHLORIDE
     Dates: start: 20161004
  10. ROCEPHIN [Suspect]
     Active Substance: CEFTRIAXONE SODIUM
     Route: 042
     Dates: start: 20161008
  11. FERROGRADE VITAMIN C (IRON, ASCORBIC ACID) [Concomitant]
  12. METHOTREXATE. [Concomitant]
     Active Substance: METHOTREXATE
  13. LORAZEPAM. [Concomitant]
     Active Substance: LORAZEPAM

REACTIONS (1)
  - Cerebellar syndrome [Recovering/Resolving]

NARRATIVE: CASE EVENT DATE: 20161011
